FAERS Safety Report 6302514-6 (Version None)
Quarter: 2009Q3

REPORT INFORMATION
  Report Type: 
  Country: None (occurrence: None)
  Receive Date: 20090810
  Receipt Date: 20090804
  Transmission Date: 20100115
  Serious: Yes (Death, Life-Threatening, Hospitalization, Disabling, Other)
  Sender: FDA-Public Use
  Company Number: US-CELGENEUS-163-21880-09041456

PATIENT
  Sex: Male
  Weight: 71.87 kg

DRUGS (8)
  1. REVLIMID [Suspect]
     Route: 048
     Dates: start: 20090201
  2. CYTOSAR-U [Concomitant]
     Route: 051
     Dates: end: 20090425
  3. CIPRO [Concomitant]
     Indication: DRUG USE FOR UNKNOWN INDICATION
     Route: 065
  4. CIPRO [Concomitant]
     Route: 065
  5. AMOXICILLIN [Concomitant]
     Indication: LYMPHADENOPATHY
     Route: 065
  6. MORPHINE [Concomitant]
     Indication: DRUG USE FOR UNKNOWN INDICATION
     Dosage: 1-3MG
     Route: 048
  7. EXTRA STRENGTH TYLENOL [Concomitant]
     Indication: PAIN
     Route: 065
  8. DIFLUCAN [Concomitant]
     Indication: DRUG USE FOR UNKNOWN INDICATION
     Route: 065

REACTIONS (3)
  - ACUTE LEUKAEMIA [None]
  - MYELODYSPLASTIC SYNDROME TRANSFORMATION [None]
  - WHITE BLOOD CELL COUNT DECREASED [None]
